FAERS Safety Report 25553882 (Version 1)
Quarter: 2025Q3

REPORT INFORMATION
  Report Type: Spontaneous
  Country: EU (occurrence: EU)
  Receive Date: 20250715
  Receipt Date: 20250715
  Transmission Date: 20251020
  Serious: Yes (Other)
  Sender: BRISTOL-MYERS SQUIBB COMPANY
  Company Number: EU-BRISTOL-MYERS SQUIBB COMPANY-2025-096193

PATIENT
  Age: 83 Year
  Sex: Female

DRUGS (3)
  1. NELVUTAMIG [Suspect]
     Active Substance: NELVUTAMIG
     Indication: Malignant melanoma
     Dosage: (PLANNED FOR A TOTAL OF 4 DOSES)
     Dates: start: 20250205
  2. NIVOLUMAB [Suspect]
     Active Substance: NIVOLUMAB
     Indication: Malignant melanoma
     Dosage: (PLANNED FOR A TOTAL OF 4 DOSES)
     Dates: start: 20250205
  3. PAMIDRONIC ACID [Concomitant]
     Active Substance: PAMIDRONIC ACID
     Indication: Metastases to bone
     Dosage: SUPPORTIVE THERAPY OVER 2H
     Route: 042

REACTIONS (5)
  - Immune-mediated enterocolitis [Unknown]
  - Immune-mediated myocarditis [Unknown]
  - Immune-mediated dermatitis [Unknown]
  - Diverticulitis [Unknown]
  - Deep vein thrombosis [Unknown]

NARRATIVE: CASE EVENT DATE: 20250201
